FAERS Safety Report 10549749 (Version 1)
Quarter: 2014Q4

REPORT INFORMATION
  Report Type: Spontaneous
  Country: US (occurrence: US)
  Receive Date: 20141028
  Receipt Date: 20141028
  Transmission Date: 20150529
  Serious: No
  Sender: FDA-Public Use
  Company Number: US-PFIZER INC-2014292735

PATIENT
  Sex: Male
  Weight: 70.3 kg

DRUGS (1)
  1. ADVIL [Suspect]
     Active Substance: IBUPROFEN
     Dosage: UNK
     Route: 048

REACTIONS (6)
  - Dysphonia [Unknown]
  - Cough [Unknown]
  - Foreign body [Unknown]
  - Oropharyngeal pain [Unknown]
  - Sensation of foreign body [Unknown]
  - Dysphagia [Unknown]

NARRATIVE: CASE EVENT DATE: 20141021
